FAERS Safety Report 8620758-5 (Version None)
Quarter: 2012Q3

REPORT INFORMATION
  Report Type: 
  Country: None (occurrence: None)
  Receive Date: 20120824
  Receipt Date: 20120816
  Transmission Date: 20120928
  Serious: Yes (Other)
  Sender: FDA-Public Use
  Company Number: ES-ROCHE-1061864

PATIENT
  Age: 72 Year
  Sex: Female
  Weight: 55 kg

DRUGS (3)
  1. ZELBORAF [Suspect]
     Indication: MALIGNANT MELANOMA
     Dosage: LAST DOE PRIOR TO SAE: 26/MAR/2012
     Route: 048
     Dates: start: 20120227, end: 20120413
  2. ZELBORAF [Suspect]
     Route: 048
     Dates: start: 20120426, end: 20120621
  3. ZELBORAF [Suspect]
     Route: 048
     Dates: start: 20120627

REACTIONS (3)
  - TOXIC SKIN ERUPTION [None]
  - RASH ERYTHEMATOUS [None]
  - KERATOACANTHOMA [None]
